FAERS Safety Report 16285347 (Version 1)
Quarter: 2019Q2

REPORT INFORMATION
  Report Type: Spontaneous
  Country: US (occurrence: US)
  Receive Date: 20190506
  Receipt Date: 20190506
  Transmission Date: 20190711
  Serious: Yes (Hospitalization)
  Sender: FDA-Public Use
  Company Number: None

PATIENT
  Sex: Female

DRUGS (7)
  1. TELMISARTAN 40MG [Concomitant]
     Active Substance: TELMISARTAN
  2. CINACALCET HCL [Suspect]
     Active Substance: CINACALCET HYDROCHLORIDE
     Indication: SENILE OSTEOPOROSIS
     Route: 048
     Dates: start: 20190423
  3. TRAMADOL ER 100MG [Concomitant]
  4. TRAMADOL 50MG [Concomitant]
     Active Substance: TRAMADOL
  5. RANITIDINE. [Concomitant]
     Active Substance: RANITIDINE
  6. SPIRONOLACTONE 25MG [Concomitant]
     Active Substance: SPIRONOLACTONE
  7. ISOSORBIDE MONO ER 30MG [Concomitant]

REACTIONS (3)
  - Hypoaesthesia [None]
  - Poverty of speech [None]
  - Feeling hot [None]
